FAERS Safety Report 12218053 (Version 1)
Quarter: 2016Q1

REPORT INFORMATION
  Report Type: Spontaneous
  Country: US (occurrence: None)
  Receive Date: 20160328
  Receipt Date: 20160328
  Transmission Date: 20160526
  Serious: Yes (Disabling)
  Sender: FDA-Public Use
  Company Number: None

PATIENT
  Age: 75 Year
  Sex: Female
  Weight: 46.72 kg

DRUGS (8)
  1. COMBIGAN + LUMIGAN EYE DROPS [Concomitant]
  2. ZETIA [Suspect]
     Active Substance: EZETIMIBE
     Indication: BLOOD CHOLESTEROL INCREASED
     Route: 048
     Dates: start: 20150924, end: 20151219
  3. WEEKLY ALLERGY SHOTS [Concomitant]
     Active Substance: UNSPECIFIED INGREDIENT
  4. CALCIUM D [Concomitant]
     Active Substance: CALCIUM\VITAMIN D
  5. MULTIPLE VITAMIN [Concomitant]
     Active Substance: VITAMINS
  6. TUMS [Concomitant]
     Active Substance: CALCIUM CARBONATE
  7. CHLOR TABS [Concomitant]
  8. MILK THISTLE [Concomitant]
     Active Substance: MILK THISTLE

REACTIONS (4)
  - Malaise [None]
  - Asthenia [None]
  - Hepatic enzyme increased [None]
  - Nervousness [None]

NARRATIVE: CASE EVENT DATE: 20151209
